FAERS Safety Report 11525690 (Version 1)
Quarter: 2015Q3

REPORT INFORMATION
  Report Type: Spontaneous
  Country: DE (occurrence: DE)
  Receive Date: 20150918
  Receipt Date: 20150918
  Transmission Date: 20151125
  Serious: Yes (Hospitalization, Other)
  Sender: FDA-Public Use
  Company Number: DE-CIPLA LTD.-2015DE07399

PATIENT

DRUGS (2)
  1. LAMOTRIGINE. [Suspect]
     Active Substance: LAMOTRIGINE
     Indication: IDIOPATHIC GENERALISED EPILEPSY
     Dosage: 400 MG, QD
     Route: 064
  2. CLOBAZAM [Concomitant]
     Active Substance: CLOBAZAM
     Dosage: 25 MG, QD

REACTIONS (3)
  - Feeding disorder [Unknown]
  - Foetal exposure during pregnancy [None]
  - Premature baby [None]
